FAERS Safety Report 13355769 (Version 2)
Quarter: 2018Q2

REPORT INFORMATION
  Report Type: Spontaneous
  Country: US (occurrence: US)
  Receive Date: 20170321
  Receipt Date: 20180404
  Transmission Date: 20180711
  Serious: No
  Sender: FDA-Public Use
  Company Number: US-BAUSCH-BL-2017-002047

PATIENT
  Age: 68 Year
  Sex: Male
  Weight: 113.5 kg

DRUGS (3)
  1. RETIN-A [Suspect]
     Active Substance: TRETINOIN
     Indication: PAPULE
     Dosage: 1 APPLICATION
     Route: 065
     Dates: start: 201603
  2. RETIN-A [Suspect]
     Active Substance: TRETINOIN
     Indication: PAPULE
     Dosage: 1 APPLICATION, DAILY
     Route: 065
     Dates: start: 201603
  3. RETIN-A [Suspect]
     Active Substance: TRETINOIN
     Indication: RASH
     Route: 065
     Dates: start: 201603

REACTIONS (4)
  - Urticaria [Not Recovered/Not Resolved]
  - Hypersensitivity [Not Recovered/Not Resolved]
  - Drug effect incomplete [Unknown]
  - Off label use [Unknown]

NARRATIVE: CASE EVENT DATE: 201603
